FAERS Safety Report 15363254 (Version 1)
Quarter: 2018Q3

REPORT INFORMATION
  Report Type: Spontaneous
  Country: US (occurrence: US)
  Receive Date: 20180907
  Receipt Date: 20180907
  Transmission Date: 20181010
  Serious: No
  Sender: FDA-Public Use
  Company Number: US-TEVA-2018-US-952462

PATIENT

DRUGS (1)
  1. AMPHETAMINE W/DEXTROAMPHETAMINE [Suspect]
     Active Substance: AMPHETAMINE SULFATE\DEXTROAMPHETAMINE
     Route: 065

REACTIONS (7)
  - Gastrointestinal disorder [Unknown]
  - Depressed mood [Unknown]
  - Product quality issue [Unknown]
  - Malaise [Unknown]
  - Headache [Unknown]
  - Disturbance in attention [Unknown]
  - Intentional product misuse [Unknown]
